FAERS Safety Report 4730610-3 (Version None)
Quarter: 2005Q3

REPORT INFORMATION
  Report Type: 
  Country: None (occurrence: None)
  Receive Date: 20050801
  Receipt Date: 20050720
  Transmission Date: 20060218
  Serious: Yes (Other)
  Sender: FDA-Public Use
  Company Number: ES-BRISTOL-MYERS SQUIBB COMPANY-13056023

PATIENT
  Age: 52 Year
  Sex: Male

DRUGS (1)
  1. ERBITUX [Suspect]
     Indication: COLORECTAL CANCER
     Dosage: 2 MG/ML 1 VIAL 50 ML
     Route: 042
     Dates: start: 20050608, end: 20050608

REACTIONS (2)
  - HYPERSENSITIVITY [None]
  - RESPIRATORY FAILURE [None]
